FAERS Safety Report 5511056-7 (Version None)
Quarter: 2007Q4

REPORT INFORMATION
  Report Type: 
  Country: None (occurrence: None)
  Receive Date: 20071107
  Receipt Date: 20071022
  Transmission Date: 20080405
  Serious: Yes (Other)
  Sender: FDA-Public Use
  Company Number: 100#08#2007-04327

PATIENT
  Age: 70 Year
  Sex: Female

DRUGS (5)
  1. CARBAMAZEPINE [Suspect]
     Indication: DRUG WITHDRAWAL SYNDROME
     Dosage: 500 MG
  2. ALPRAZOLAM [Suspect]
     Indication: PANIC DISORDER
     Dosage: 0.5 - 1 MG/DAY; STOPPED (3 WEEKS LATER)
  3. DIAZEPAM [Concomitant]
  4. MELPERON (MELPERONE) (MELPERON) [Concomitant]
  5. MIRTAZAPINE [Concomitant]

REACTIONS (6)
  - ALANINE AMINOTRANSFERASE INCREASED [None]
  - DELIRIUM [None]
  - GAMMA-GLUTAMYLTRANSFERASE INCREASED [None]
  - GENERAL PHYSICAL HEALTH DETERIORATION [None]
  - HYPERTENSION [None]
  - WITHDRAWAL SYNDROME [None]
